FAERS Safety Report 7316650-9 (Version None)
Quarter: 2011Q1

REPORT INFORMATION
  Report Type: 
  Country: None (occurrence: None)
  Receive Date: 20110226
  Receipt Date: 20100826
  Transmission Date: 20110831
  Serious: No
  Sender: FDA-Public Use
  Company Number: US-ALLERGAN-1009622US

PATIENT
  Age: 67 Year
  Sex: Female
  Weight: 52.154 kg

DRUGS (2)
  1. BOTOX COSMETIC [Suspect]
     Indication: SKIN WRINKLING
     Dosage: 6 UNITS, SINGLE
     Dates: start: 20100506, end: 20100506
  2. RESTYLANE [Concomitant]
     Indication: SKIN WRINKLING
     Dosage: 1 ML, SINGLE
     Dates: start: 20100506, end: 20100506

REACTIONS (13)
  - CYSTITIS [None]
  - SENSORY DISTURBANCE [None]
  - MUSCULAR WEAKNESS [None]
  - NASAL CONGESTION [None]
  - DYSPHAGIA [None]
  - PNEUMONIA [None]
  - FACIAL PARESIS [None]
  - SWELLING FACE [None]
  - SENSATION OF HEAVINESS [None]
  - DYSPHONIA [None]
  - SENSATION OF PRESSURE [None]
  - LIP SWELLING [None]
  - DYSPNOEA [None]
